FAERS Safety Report 20030219 (Version 1)
Quarter: 2021Q4

REPORT INFORMATION
  Report Type: Spontaneous
  Country: CN (occurrence: CN)
  Receive Date: 20211103
  Receipt Date: 20211103
  Transmission Date: 20220303
  Serious: Yes (Other)
  Sender: FDA-Public Use
  Company Number: CN-PFIZER INC-202101418970

PATIENT
  Age: 36 Year
  Sex: Female

DRUGS (2)
  1. SOLU-MEDROL [Suspect]
     Active Substance: METHYLPREDNISOLONE SODIUM SUCCINATE
     Indication: Lymphoma
     Dosage: 40 MG, 1X/DAY
     Route: 041
     Dates: start: 20210708
  2. SODIUM CHLORIDE [Concomitant]
     Active Substance: SODIUM CHLORIDE
     Indication: Lymphoma
     Dosage: 100 ML, 1X/DAY
     Route: 041
     Dates: start: 20210708, end: 20210804

REACTIONS (2)
  - Abdominal pain upper [Recovering/Resolving]
  - Epigastric discomfort [Recovering/Resolving]

NARRATIVE: CASE EVENT DATE: 20210716
